FAERS Safety Report 18570233 (Version 5)
Quarter: 2021Q1

REPORT INFORMATION
  Report Type: Spontaneous
  Country: US (occurrence: US)
  Receive Date: 20201202
  Receipt Date: 20210118
  Transmission Date: 20210419
  Serious: Yes (Other)
  Sender: FDA-Public Use
  Company Number: US-PFIZER INC-2020068044

PATIENT
  Age: 62 Year
  Sex: Male

DRUGS (3)
  1. NADOLOL. [Concomitant]
     Active Substance: NADOLOL
     Dosage: 20 MG, 1X/DAY
     Dates: start: 2010
  2. INSPRA [Suspect]
     Active Substance: EPLERENONE
     Indication: ESSENTIAL HYPERTENSION
  3. INSPRA [Suspect]
     Active Substance: EPLERENONE
     Indication: BLOOD PRESSURE MANAGEMENT
     Dosage: 50 MG, 2X/DAY
     Route: 048

REACTIONS (4)
  - Vein disorder [Unknown]
  - Haemorrhage [Unknown]
  - Abdominal hernia [Unknown]
  - Alopecia [Unknown]

NARRATIVE: CASE EVENT DATE: 2005
